FAERS Safety Report 15125064 (Version 1)
Quarter: 2018Q3

REPORT INFORMATION
  Report Type: Report from Study
  Country: BR (occurrence: BR)
  Receive Date: 20180710
  Receipt Date: 20180710
  Transmission Date: 20181010
  Serious: Yes (Other)
  Sender: FDA-Public Use
  Company Number: PHHY2014BR095990

PATIENT
  Sex: Female
  Weight: 50 kg

DRUGS (4)
  1. SANDOSTATIN LAR DEPOT [Suspect]
     Active Substance: OCTREOTIDE ACETATE
     Dosage: 30 MG, EVERY 20 DAYS
     Route: 030
     Dates: start: 2011
  2. GLIFAGE [Concomitant]
     Active Substance: METFORMIN HYDROCHLORIDE
     Indication: DIABETES MELLITUS
     Dosage: 1 DF, DAILY
     Route: 065
  3. LOTAR [Concomitant]
     Active Substance: AMLODIPINE\LOSARTAN
     Indication: HYPERTENSION
     Dosage: 1 DF, BID (1 IN THE MORNING AND 1 AT NIGHT)
     Route: 065
  4. SANDOSTATIN LAR DEPOT [Suspect]
     Active Substance: OCTREOTIDE ACETATE
     Indication: ACROMEGALY
     Dosage: 20 MG, QMO, EVERY 28 DAYS
     Route: 030
     Dates: start: 2006

REACTIONS (5)
  - Weight decreased [Unknown]
  - Weight decreased [Recovered/Resolved]
  - Cardiac disorder [Recovered/Resolved]
  - Inappropriate schedule of drug administration [Unknown]
  - Blood growth hormone increased [Unknown]

NARRATIVE: CASE EVENT DATE: 2011
